FAERS Safety Report 20103599 (Version 1)
Quarter: 2021Q4

REPORT INFORMATION
  Report Type: Spontaneous
  Country: US (occurrence: None)
  Receive Date: 20211123
  Receipt Date: 20211123
  Transmission Date: 20220303
  Serious: Yes (Hospitalization)
  Sender: FDA-Public Use
  Company Number: None

PATIENT
  Age: 63 Year
  Sex: Female
  Weight: 59.5 kg

DRUGS (2)
  1. TOCILIZUMAB [Suspect]
     Active Substance: TOCILIZUMAB
     Indication: COVID-19
     Dosage: OTHER FREQUENCY : ONCE;?
     Route: 041
     Dates: start: 20210722, end: 20210722
  2. methylprednisolone 20 mg IV q 12h [Concomitant]
     Dates: start: 20210722, end: 20210730

REACTIONS (3)
  - Pneumonia streptococcal [None]
  - Systemic candida [None]
  - Infection [None]

NARRATIVE: CASE EVENT DATE: 20210807
